FAERS Safety Report 7598362-X (Version None)
Quarter: 2011Q3

REPORT INFORMATION
  Report Type: 
  Country: None (occurrence: None)
  Receive Date: 20110708
  Receipt Date: 20110701
  Transmission Date: 20111222
  Serious: Yes (Hospitalization)
  Sender: FDA-Public Use
  Company Number: PHHY2011JP44490

PATIENT
  Age: 93 Year
  Sex: Female

DRUGS (2)
  1. VOLTAREN [Suspect]
     Indication: ANTIPYRESIS
     Route: 054
  2. VOLTAREN [Suspect]
     Indication: PYREXIA

REACTIONS (4)
  - BLOOD PRESSURE DECREASED [None]
  - RENAL IMPAIRMENT [None]
  - SHOCK [None]
  - RENAL FUNCTION TEST ABNORMAL [None]
